FAERS Safety Report 13729269 (Version 1)
Quarter: 2017Q3

REPORT INFORMATION
  Report Type: Spontaneous
  Country: US (occurrence: US)
  Receive Date: 20170707
  Receipt Date: 20170707
  Transmission Date: 20171127
  Serious: Yes (Hospitalization)
  Sender: FDA-Public Use
  Company Number: US-SA-2017SA119314

PATIENT
  Age: 24 Month
  Sex: Male

DRUGS (1)
  1. HYDROCORTISONE. [Suspect]
     Active Substance: HYDROCORTISONE
     Indication: DERMATITIS ATOPIC
     Route: 061

REACTIONS (8)
  - Herpes simplex [Unknown]
  - Skin plaque [Unknown]
  - Blister [Unknown]
  - Rash vesicular [Unknown]
  - Skin erosion [Unknown]
  - Eczema herpeticum [Unknown]
  - Scab [Unknown]
  - Pain [Unknown]
